FAERS Safety Report 15548127 (Version 1)
Quarter: 2018Q4

REPORT INFORMATION
  Report Type: Spontaneous
  Country: US (occurrence: US)
  Receive Date: 20181024
  Receipt Date: 20181024
  Transmission Date: 20190205
  Serious: Yes (Other)
  Sender: FDA-Public Use
  Company Number: PHEH2018US044381

PATIENT

DRUGS (4)
  1. TRASTUZUMAB. [Suspect]
     Active Substance: TRASTUZUMAB
     Indication: METASTATIC GASTRIC CANCER
     Route: 065
  2. CISPLATIN. [Suspect]
     Active Substance: CISPLATIN
     Indication: METASTATIC GASTRIC CANCER
     Route: 065
  3. 5 FU [Suspect]
     Active Substance: FLUOROURACIL
     Indication: METASTATIC GASTRIC CANCER
     Dosage: UNK
     Route: 065
  4. DOCETAXEL. [Suspect]
     Active Substance: DOCETAXEL
     Indication: METASTATIC GASTRIC CANCER
     Route: 065

REACTIONS (2)
  - Malignant neoplasm progression [Unknown]
  - Metastatic gastric cancer [Unknown]
